FAERS Safety Report 4975616-4 (Version None)
Quarter: 2006Q2

REPORT INFORMATION
  Report Type: 
  Country: None (occurrence: None)
  Receive Date: 20060411
  Receipt Date: 20051227
  Transmission Date: 20061013
  Serious: Yes (Death)
  Sender: FDA-Public Use
  Company Number: 2006-140393-NL

PATIENT
  Age: 82 Year
  Sex: Male

DRUGS (6)
  1. DANAPAROID SODIUM [Suspect]
     Indication: DISSEMINATED INTRAVASCULAR COAGULATION
     Dosage: INTRAVENOUS (NOS)
     Route: 042
     Dates: start: 20050120, end: 20050121
  2. MICAFUNGIN SODIUM [Concomitant]
  3. METHYLPREDNISOLONE SODIUM SUCCINATE [Concomitant]
  4. PLATELETS [Concomitant]
  5. PLASMA PROTEIN FRACTION (HUMAN) [Concomitant]
  6. CARBENIN [Concomitant]

REACTIONS (5)
  - DISSEMINATED INTRAVASCULAR COAGULATION [None]
  - HAEMOGLOBIN DECREASED [None]
  - INFECTION [None]
  - UPPER GASTROINTESTINAL HAEMORRHAGE [None]
  - WHITE BLOOD CELL COUNT INCREASED [None]
